FAERS Safety Report 12589542 (Version 2)
Quarter: 2016Q3

REPORT INFORMATION
  Report Type: Spontaneous
  Country: US (occurrence: US)
  Receive Date: 20160725
  Receipt Date: 20160803
  Transmission Date: 20161109
  Serious: Yes (Death, Hospitalization, Other)
  Sender: FDA-Public Use
  Company Number: US-OTSUKA-2016_018030

PATIENT
  Age: 76 Year
  Sex: Male
  Weight: 73.1 kg

DRUGS (3)
  1. DACOGEN [Suspect]
     Active Substance: DECITABINE
     Dosage: 190 MG,  IN 1 CYCLICAL
     Route: 042
     Dates: start: 20130517
  2. DACOGEN [Suspect]
     Active Substance: DECITABINE
     Dosage: 20 MG/M2,  IN 1 CYCLICAL
     Route: 042
     Dates: start: 20130513
  3. DACOGEN [Suspect]
     Active Substance: DECITABINE
     Indication: ACUTE MYELOID LEUKAEMIA
     Dosage: 20 MG/M2,  IN 1 CYCLICAL 20 MG/M2 OVER 60 MINUTES ON DAYS 1-10 CONTINUATION THERAPY ON DAYS 1-5.
     Route: 042
     Dates: start: 20130114

REACTIONS (4)
  - Sepsis [Fatal]
  - Febrile neutropenia [Not Recovered/Not Resolved]
  - Blood bilirubin increased [Recovered/Resolved]
  - Pneumonitis [Unknown]

NARRATIVE: CASE EVENT DATE: 20130516
